FAERS Safety Report 11599568 (Version 1)
Quarter: 2015Q3

REPORT INFORMATION
  Report Type: Spontaneous
  Country: US (occurrence: US)
  Receive Date: 20150916
  Receipt Date: 20150916
  Transmission Date: 20151125
  Serious: No
  Sender: FDA-Public Use
  Company Number: US-ELI_LILLY_AND_COMPANY-US200710004644

PATIENT
  Sex: Female
  Weight: 51.7 kg

DRUGS (1)
  1. FORTEO [Suspect]
     Active Substance: TERIPARATIDE
     Dosage: 20 UG, DAILY (1/D)
     Dates: start: 20070825

REACTIONS (2)
  - Rash pruritic [Recovering/Resolving]
  - Vaginal inflammation [Recovering/Resolving]

NARRATIVE: CASE EVENT DATE: 2007
